FAERS Safety Report 9865409 (Version 1)
Quarter: 2014Q1

REPORT INFORMATION
  Report Type: Spontaneous
  Country: US (occurrence: US)
  Receive Date: 20140203
  Receipt Date: 20140203
  Transmission Date: 20141002
  Serious: No
  Sender: FDA-Public Use
  Company Number: US-ALLERGAN-1308583US

PATIENT
  Age: 61 Year
  Sex: Male

DRUGS (4)
  1. RESTASIS [Suspect]
     Indication: DRY EYE
     Dosage: UNK
     Route: 047
  2. REFRESH OPTIVE [Concomitant]
     Indication: DRY EYE
  3. REFRESH LIQUIGEL OPHTHALMIC [Concomitant]
     Indication: DRY EYE
  4. LOTEMAX [Concomitant]
     Indication: PRODUCT USED FOR UNKNOWN INDICATION

REACTIONS (3)
  - Asthenopia [Unknown]
  - Inappropriate schedule of drug administration [Unknown]
  - Dry eye [Unknown]
